FAERS Safety Report 8590981-7 (Version None)
Quarter: 2012Q3

REPORT INFORMATION
  Report Type: 
  Country: None (occurrence: None)
  Receive Date: 20120813
  Receipt Date: 20120808
  Transmission Date: 20120928
  Serious: Yes (Life-Threatening, Hospitalization, Other)
  Sender: FDA-Public Use
  Company Number: JP-GILEAD-2012-0059574

PATIENT
  Sex: Male

DRUGS (5)
  1. NERIPROCT [Concomitant]
     Dosage: UNK
  2. EMTRICITABINE/TENOFOVIR DISOPROXIL FUMARATE [Suspect]
     Indication: HIV INFECTION
     Dosage: 1 DF, QD
     Dates: start: 20050909
  3. FAMOTIDINE [Concomitant]
     Dosage: UNK
     Dates: start: 20070402
  4. EFAVIRENZ [Suspect]
     Indication: HIV INFECTION
     Dosage: 600 MG, QD
     Route: 048
     Dates: start: 20060726
  5. EFAVIRENZ [Suspect]
     Dosage: 600 MG, QD
     Route: 048
     Dates: start: 20050825, end: 20060725

REACTIONS (1)
  - LACUNAR INFARCTION [None]
